FAERS Safety Report 7864275-9 (Version None)
Quarter: 2011Q4

REPORT INFORMATION
  Report Type: 
  Country: None (occurrence: None)
  Receive Date: 20111028
  Receipt Date: 20100921
  Transmission Date: 20120403
  Serious: No
  Sender: FDA-Public Use
  Company Number: US-GLAXOSMITHKLINE-A0882353A

PATIENT
  Age: 59 Year
  Sex: Male

DRUGS (3)
  1. VALIUM [Concomitant]
  2. SEREVENT [Suspect]
     Indication: ASTHMA
     Dosage: 50MCG TWICE PER DAY
     Route: 055
     Dates: start: 20090615
  3. FLONASE [Concomitant]

REACTIONS (3)
  - PRODUCT QUALITY ISSUE [None]
  - COUGH [None]
  - DYSGEUSIA [None]
